FAERS Safety Report 13350747 (Version 1)
Quarter: 2017Q1

REPORT INFORMATION
  Report Type: Report from Study
  Country: AU (occurrence: AU)
  Receive Date: 20170320
  Receipt Date: 20170320
  Transmission Date: 20170429
  Serious: Yes (Hospitalization)
  Sender: FDA-Public Use
  Company Number: AU-PFIZER INC-2017112731

PATIENT
  Age: 69 Year
  Sex: Male

DRUGS (17)
  1. MAXOLON [Concomitant]
     Active Substance: METOCLOPRAMIDE HYDROCHLORIDE
     Indication: PROPHYLAXIS OF NAUSEA AND VOMITING
     Dosage: UNK
     Dates: start: 20160429, end: 20161001
  2. LIGNOCAINE [Concomitant]
     Active Substance: LIDOCAINE HYDROCHLORIDE
     Indication: STOMATITIS
     Dosage: UNK
     Dates: start: 20160506
  3. NEXIUM [Concomitant]
     Active Substance: ESOMEPRAZOLE MAGNESIUM
     Indication: PAIN PROPHYLAXIS
     Dosage: UNK
     Dates: start: 20160620, end: 20161021
  4. PEGFILGRASTIM [Concomitant]
     Active Substance: PEGFILGRASTIM
     Dosage: UNK
     Dates: start: 20160725, end: 20160725
  5. BACTRIM [Concomitant]
     Active Substance: SULFAMETHOXAZOLE\TRIMETHOPRIM
     Indication: INFECTION PROPHYLAXIS
     Dosage: UNK
     Dates: start: 20160429, end: 20160730
  6. COCAINE [Concomitant]
     Active Substance: COCAINE
     Indication: STOMATITIS
     Dosage: UNK
     Dates: start: 20160506
  7. DOXORUBICIN HCL [Suspect]
     Active Substance: DOXORUBICIN HYDROCHLORIDE
     Indication: LYMPHOMA
     Dosage: 50 MG/M2, EVERY 3 WEEKS, (MOST RECENT DOSE PRIOR TO AE ONSET: 22JUL2016 AT 15:03 HOURS, 102 MG)
     Route: 042
     Dates: start: 20160429
  8. VALACICLOVIR [Concomitant]
     Active Substance: VALACYCLOVIR HYDROCHLORIDE
     Indication: ANTIVIRAL PROPHYLAXIS
     Dosage: UNK
     Dates: start: 20160506
  9. VINCRISTINE SULFATE. [Suspect]
     Active Substance: VINCRISTINE SULFATE
     Indication: LYMPHOMA
     Dosage: 1.4 MG/M2, EVERY 3 WEEKS, (MOST RECENT DOSE PRIOR TO AE ONSET: 22JUL2016 AT 15:20 HOURS, 1 MG)
     Route: 042
     Dates: start: 20160429
  10. PEGFILGRASTIM [Concomitant]
     Active Substance: PEGFILGRASTIM
     Indication: PROPHYLAXIS
     Dosage: 6 MG, (STAT DAY 4 EVERY CYCLE)
     Route: 058
     Dates: start: 20160613, end: 20160815
  11. PEGFILGRASTIM [Concomitant]
     Active Substance: PEGFILGRASTIM
     Dosage: UNK
     Dates: start: 20160704, end: 20160704
  12. PERINDOPRIL [Concomitant]
     Active Substance: PERINDOPRIL
     Indication: HYPERTENSION
     Dosage: UNK
     Dates: start: 20120403, end: 20160729
  13. PREDNISONE. [Suspect]
     Active Substance: PREDNISONE
     Indication: LYMPHOMA
     Dosage: 100 MG, (MOST RECENT DOSE PRIOR TO AE ONSET: 22JUL2016, 100 MG)
     Route: 048
     Dates: start: 20160429
  14. VENETOCLAX [Suspect]
     Active Substance: VENETOCLAX
     Indication: LYMPHOMA
     Dosage: 800 MG, DAILY, (MOST RECENT DOSE PRIOR TO AE ONSET: 26JUL2016)
     Route: 048
     Dates: start: 20160502
  15. OBINUTUZUMAB [Suspect]
     Active Substance: OBINUTUZUMAB
     Indication: LYMPHOMA
     Dosage: 1000 MG, EVERY 3 WEEKS, (MOST RECENT DOSE PRIOR TO AE ONSET: 22JUL2016 AT 11:24 HOURS)
     Route: 042
     Dates: start: 20160429
  16. CYCLOPHOSPHAMIDE. [Suspect]
     Active Substance: CYCLOPHOSPHAMIDE
     Indication: LYMPHOMA
     Dosage: 750 MG/M2, EVERY 3 WEEKS, (MOST RECENT DOSE PRIOR TO AE ONSET: 22JUL2016 AT 15:30 HOURS, 15:20 MG)
     Route: 042
     Dates: start: 20160429
  17. PREDNISOLONE. [Concomitant]
     Active Substance: PREDNISOLONE
     Indication: PROPHYLAXIS OF NAUSEA AND VOMITING
     Dosage: 25 MG, (ON DAY 6, 7 EVERY CYCLE)
     Dates: start: 20160722, end: 20160816

REACTIONS (1)
  - Neutropenic sepsis [Recovered/Resolved]

NARRATIVE: CASE EVENT DATE: 20160730
